FAERS Safety Report 7082659-6 (Version None)
Quarter: 2010Q4

REPORT INFORMATION
  Report Type: 
  Country: None (occurrence: None)
  Receive Date: 20101001
  Receipt Date: 20100804
  Transmission Date: 20110411
  Serious: Yes (Hospitalization, Other)
  Sender: FDA-Public Use
  Company Number: 1000013808

PATIENT
  Age: 72 Year
  Sex: Female

DRUGS (9)
  1. BYSTOLIC [Suspect]
     Indication: ANGINA PECTORIS
     Dosage: 5 MG (5 MG, 1 IN 1 D), ORAL
     Route: 048
     Dates: start: 20100508, end: 20100509
  2. BYSTOLIC [Suspect]
     Indication: HYPERTENSION
     Dosage: 5 MG (5 MG, 1 IN 1 D), ORAL
     Route: 048
     Dates: start: 20100508, end: 20100509
  3. DIOVAN (TABLETS) [Concomitant]
  4. ASPIRIN [Concomitant]
  5. PLAVIX [Concomitant]
  6. KEPPRA [Concomitant]
  7. CLONAZEPAM [Concomitant]
  8. NORTRIPTYLINE HCL [Concomitant]
  9. ASTELIN [Concomitant]

REACTIONS (1)
  - ANGIOEDEMA [None]
